FAERS Safety Report 4372569-7 (Version None)
Quarter: 2004Q2

REPORT INFORMATION
  Report Type: 
  Country: None (occurrence: None)
  Receive Date: 20040526
  Receipt Date: 20040517
  Transmission Date: 20050107
  Serious: Yes (Death, Other)
  Sender: FDA-Public Use
  Company Number: USA-2004-0013977

PATIENT
  Age: 48 Year
  Sex: Male
  Weight: 76.2 kg

DRUGS (7)
  1. OXYCONTIN [Suspect]
     Indication: PAIN
     Dosage: SEE IMAGE
     Route: 048
     Dates: start: 20030710, end: 20040220
  2. OXYCONTIN [Suspect]
     Indication: PAIN
     Dosage: SEE IMAGE
     Route: 048
     Dates: start: 20030710, end: 20040220
  3. OXYCONTIN [Suspect]
     Indication: PAIN
     Dosage: SEE IMAGE
     Route: 048
     Dates: start: 20040408
  4. OXYCONTIN [Suspect]
     Indication: PAIN
     Dosage: SEE IMAGE
     Route: 048
     Dates: start: 20040408
  5. ULTRAM [Concomitant]
  6. SOMA [Concomitant]
  7. CELEBREX [Concomitant]

REACTIONS (6)
  - CARDIAC ARREST [None]
  - DEPENDENCE [None]
  - MALAISE [None]
  - NAUSEA [None]
  - PAIN EXACERBATED [None]
  - TREATMENT NONCOMPLIANCE [None]
